FAERS Safety Report 7562264-5 (Version None)
Quarter: 2011Q2

REPORT INFORMATION
  Report Type: 
  Country: None (occurrence: None)
  Receive Date: 20110622
  Receipt Date: 20110614
  Transmission Date: 20111010
  Serious: Yes (Hospitalization)
  Sender: FDA-Public Use
  Company Number: US-JNJFOC-20110510568

PATIENT
  Sex: Male
  Weight: 77.11 kg

DRUGS (1)
  1. REGRANEX [Suspect]
     Indication: WOUND
     Dosage: NDC#0045-0810-15
     Route: 061
     Dates: start: 20110201

REACTIONS (3)
  - INCORRECT STORAGE OF DRUG [None]
  - DRUG INEFFECTIVE [None]
  - THROMBOSIS [None]
